FAERS Safety Report 10671512 (Version 3)
Quarter: 2015Q2

REPORT INFORMATION
  Report Type: Spontaneous
  Country: DE (occurrence: JP)
  Receive Date: 20141223
  Receipt Date: 20150423
  Transmission Date: 20150821
  Serious: Yes (Hospitalization)
  Sender: FDA-Public Use
  Company Number: JP-FRI-1000073265

PATIENT
  Age: 78 Year
  Sex: Male
  Weight: 47 kg

DRUGS (14)
  1. MEMANTINE [Suspect]
     Active Substance: MEMANTINE
     Indication: DEMENTIA
     Dosage: 5 MG
     Route: 048
     Dates: start: 20111206, end: 20120822
  2. TRAZODONE [Concomitant]
     Active Substance: TRAZODONE HYDROCHLORIDE
     Dates: start: 20140910
  3. PLAVIX [Concomitant]
     Active Substance: CLOPIDOGREL BISULFATE
     Dates: start: 20130328
  4. MEMANTINE [Suspect]
     Active Substance: MEMANTINE
     Dosage: 10 MG
     Route: 048
     Dates: start: 20140910, end: 20141128
  5. MEMANTINE [Suspect]
     Active Substance: MEMANTINE
     Dosage: 15 MG
     Route: 048
     Dates: start: 20141129, end: 20141204
  6. MEMANTINE [Suspect]
     Active Substance: MEMANTINE
     Dosage: 10 MG
     Route: 048
     Dates: start: 20120823, end: 20140513
  7. MEMANTINE [Suspect]
     Active Substance: MEMANTINE
     Dosage: 10 MG
     Route: 048
     Dates: start: 20140722, end: 20140909
  8. SEROQUEL [Concomitant]
     Active Substance: QUETIAPINE FUMARATE
     Dates: start: 20140716
  9. YOKUKANSAN [Concomitant]
     Active Substance: HERBALS
     Dates: start: 20140514
  10. MEMANTINE [Suspect]
     Active Substance: MEMANTINE
     Dosage: 15 MG
     Route: 048
     Dates: start: 20140514, end: 20140714
  11. MEMANTINE [Suspect]
     Active Substance: MEMANTINE
     Dosage: 20 MG
     Route: 048
     Dates: start: 20140716, end: 20140722
  12. LUNESTA [Concomitant]
     Active Substance: ESZOPICLONE
     Dates: start: 20140109
  13. REMINYL [Concomitant]
     Active Substance: GALANTAMINE
     Dates: start: 20130718
  14. ROZEREM [Concomitant]
     Active Substance: RAMELTEON
     Dates: start: 20120417

REACTIONS (1)
  - Rhabdomyolysis [Recovering/Resolving]

NARRATIVE: CASE EVENT DATE: 20141204
